FAERS Safety Report 6468908-3 (Version None)
Quarter: 2009Q4

REPORT INFORMATION
  Report Type: 
  Country: None (occurrence: None)
  Receive Date: 20091203
  Receipt Date: 20080225
  Transmission Date: 20100525
  Serious: Yes (Hospitalization, Other)
  Sender: FDA-Public Use
  Company Number: US-ELI_LILLY_AND_COMPANY-US97120433A

PATIENT
  Age: 48 Year
  Sex: Female

DRUGS (1)
  1. ZYPREXA [Suspect]
     Dosage: 200 MG, UNKNOWN
     Route: 048

REACTIONS (5)
  - DRUG TOXICITY [None]
  - ELECTROCARDIOGRAM ST-T CHANGE [None]
  - ORTHOSTATIC HYPOTENSION [None]
  - OVERDOSE [None]
  - SINUS TACHYCARDIA [None]
